FAERS Safety Report 20783555 (Version 1)
Quarter: 2022Q2

REPORT INFORMATION
  Report Type: Spontaneous
  Country: US (occurrence: US)
  Receive Date: 20220504
  Receipt Date: 20220504
  Transmission Date: 20220721
  Serious: Yes (Hospitalization, Other)
  Sender: FDA-Public Use
  Company Number: US-PROCTER+GAMBLE-PH22004205

PATIENT
  Age: 30 Year
  Sex: Female

DRUGS (4)
  1. CALCIUM CARBONATE [Suspect]
     Active Substance: CALCIUM CARBONATE
     Indication: Gastrooesophageal reflux disease
     Dosage: UNK, DAILY, 8 TO 10 TABLETS
     Route: 048
  2. DEVICE\INSULIN NOS [Concomitant]
     Active Substance: DEVICE\INSULIN NOS
     Dosage: UNK
  3. BETAMETHASONE [Concomitant]
     Active Substance: BETAMETHASONE
     Dosage: 12 MILLIGRAM, 1 /DAY, FOR 3 DOSES BEFORE ADMISSION
     Route: 030
  4. VITAMIN D                          /00107901/ [Concomitant]
     Dosage: UNK

REACTIONS (18)
  - Pre-eclampsia [Not Recovered/Not Resolved]
  - Acute kidney injury [Unknown]
  - Hypertension [Recovering/Resolving]
  - Blood pressure systolic increased [Recovered/Resolved]
  - Abdominal pain [Unknown]
  - Oedema peripheral [Unknown]
  - Biopsy kidney abnormal [Unknown]
  - Thrombotic microangiopathy [Unknown]
  - Maternal exposure during pregnancy [Unknown]
  - Blood creatinine increased [Recovered/Resolved]
  - Blood calcium increased [Recovered/Resolved]
  - Calcium ionised increased [Recovered/Resolved]
  - Blood alkaline phosphatase increased [Unknown]
  - Blood albumin decreased [Unknown]
  - Blood uric acid increased [Unknown]
  - Blood parathyroid hormone decreased [Unknown]
  - Red blood cells urine positive [Unknown]
  - Premature delivery [Unknown]
